FAERS Safety Report 4390748-X (Version None)
Quarter: 2004Q3

REPORT INFORMATION
  Report Type: 
  Country: None (occurrence: None)
  Receive Date: 20040706
  Receipt Date: 20040706
  Transmission Date: 20050211
  Serious: Yes (Hospitalization)
  Sender: FDA-Public Use
  Company Number: None

PATIENT
  Sex: Male
  Weight: 73.9363 kg

DRUGS (9)
  1. GEMCITABINE [Suspect]
     Indication: PANCREATIC CARCINOMA
     Dosage: 1110 MG Q3W IV
     Route: 042
     Dates: start: 20040520
  2. DURAGESIC [Concomitant]
  3. VICODIN [Concomitant]
  4. ACIPHEX [Concomitant]
  5. SYNTHROID [Concomitant]
  6. MIRALAX [Concomitant]
  7. PANGESTYME [Concomitant]
  8. IMDUR [Concomitant]
  9. LASIX [Concomitant]

REACTIONS (5)
  - BILE DUCT OBSTRUCTION [None]
  - ENTEROBACTER INFECTION [None]
  - ESCHERICHIA INFECTION [None]
  - JAUNDICE [None]
  - PYREXIA [None]
